FAERS Safety Report 4395611-6 (Version None)
Quarter: 2004Q3

REPORT INFORMATION
  Report Type: 
  Country: None (occurrence: None)
  Receive Date: 20040712
  Receipt Date: 20040712
  Transmission Date: 20050211
  Serious: Yes (Other)
  Sender: FDA-Public Use
  Company Number: None

PATIENT
  Age: 40 Year
  Sex: Male
  Weight: 78.9 kg

DRUGS (10)
  1. FLUNISOLIDE [Suspect]
  2. PSEUDOEPHEDRINE HCL [Concomitant]
  3. GUAIFENESIN [Concomitant]
  4. AZITHROMYCIN [Concomitant]
  5. MONTELUKAST NA [Concomitant]
  6. ALBUTEROL [Concomitant]
  7. FLUNISOLLIDE [Concomitant]
  8. LORATADINE [Concomitant]
  9. SALMETEROL 50 MG/BLSTR INHL DISKUS [Concomitant]
  10. FLUTICASONE PROP INHL [Concomitant]

REACTIONS (2)
  - NASAL DISCOMFORT [None]
  - THROAT IRRITATION [None]
